FAERS Safety Report 10692069 (Version 1)
Quarter: 2015Q1

REPORT INFORMATION
  Report Type: Spontaneous
  Country: US (occurrence: US)
  Receive Date: 20150106
  Receipt Date: 20150106
  Transmission Date: 20150720
  Serious: Yes (Hospitalization)
  Sender: FDA-Public Use
  Company Number: US-BEH-2014047631

PATIENT
  Age: 91 Year
  Sex: Female
  Weight: 54 kg

DRUGS (31)
  1. RESTASIS [Concomitant]
     Active Substance: CYCLOSPORINE
  2. VERAPAMIL [Concomitant]
     Active Substance: VERAPAMIL HYDROCHLORIDE
  3. JANTOVEN [Concomitant]
     Active Substance: WARFARIN SODIUM
  4. OCUVITE [Concomitant]
     Active Substance: VITAMINS
  5. EQL SENNA LAXATIVE [Concomitant]
  6. HIZENTRA [Suspect]
     Active Substance: HUMAN IMMUNOGLOBULIN G
     Indication: IMMUNODEFICIENCY COMMON VARIABLE
     Route: 058
  7. EPIPEN [Concomitant]
     Active Substance: EPINEPHRINE
  8. OXYGEN. [Concomitant]
     Active Substance: OXYGEN
  9. FOLIC ACID. [Concomitant]
     Active Substance: FOLIC ACID
  10. PROMETHAZINE [Concomitant]
     Active Substance: PROMETHAZINE\PROMETHAZINE HYDROCHLORIDE
  11. DUONEB [Concomitant]
     Active Substance: ALBUTEROL SULFATE\IPRATROPIUM BROMIDE
     Dosage: 0.5
  12. PANTOPRAZOLE SOD DR [Concomitant]
  13. ZOLPIDEM TARTRATE. [Concomitant]
     Active Substance: ZOLPIDEM TARTRATE
  14. ANUSOL-HC [Concomitant]
  15. AUGMENTIN [Concomitant]
     Active Substance: AMOXICILLIN\CLAVULANATE POTASSIUM
     Dosage: 875-125
  16. FLONASE [Concomitant]
     Active Substance: FLUTICASONE PROPIONATE
  17. LEVOTHYROXINE [Concomitant]
     Active Substance: LEVOTHYROXINE
  18. OFLOXACIN. [Concomitant]
     Active Substance: OFLOXACIN
  19. EQL VITAMIN [Concomitant]
  20. FUROSEMIDE. [Concomitant]
     Active Substance: FUROSEMIDE
  21. CVS STOOL SOFTENER [Concomitant]
  22. HIZENTRA [Suspect]
     Active Substance: HUMAN IMMUNOGLOBULIN G
     Route: 058
  23. CENTRUM SILVER [Concomitant]
     Active Substance: VITAMINS
  24. LACTULOSE. [Concomitant]
     Active Substance: LACTULOSE
     Dosage: 10 GM/15 ML
  25. LISINOPRIL. [Concomitant]
     Active Substance: LISINOPRIL
  26. SERTRALINE HCL [Concomitant]
     Active Substance: SERTRALINE HYDROCHLORIDE
  27. CALCIUM LACTATE [Concomitant]
     Active Substance: CALCIUM LACTATE
  28. MIRALAX POWDER [Concomitant]
  29. EQL VITAMIN C [Concomitant]
  30. METOPROLOL SUCC [Concomitant]
     Active Substance: METOPROLOL SUCCINATE
  31. WARFARIN SODIUM. [Concomitant]
     Active Substance: WARFARIN SODIUM

REACTIONS (1)
  - Fluid retention [Unknown]

NARRATIVE: CASE EVENT DATE: 20141222
